FAERS Safety Report 25947920 (Version 1)
Quarter: 2025Q4

REPORT INFORMATION
  Report Type: Spontaneous
  Country: US (occurrence: None)
  Receive Date: 20251021
  Receipt Date: 20251021
  Transmission Date: 20260118
  Serious: Yes (Hospitalization)
  Sender: FDA-CTU
  Company Number: None

PATIENT
  Age: 70 Year
  Sex: Male
  Weight: 117 kg

DRUGS (3)
  1. METOPROLOL [Suspect]
     Active Substance: METOPROLOL
  2. MIRTAZAPINE [Concomitant]
     Active Substance: MIRTAZAPINE
  3. RAMELTEON [Concomitant]
     Active Substance: RAMELTEON

REACTIONS (3)
  - Syncope [None]
  - Bradycardia [None]
  - Orthostatic hypotension [None]

NARRATIVE: CASE EVENT DATE: 20190319
